FAERS Safety Report 23649497 (Version 1)
Quarter: 2024Q1

REPORT INFORMATION
  Report Type: Report from Study
  Country: US (occurrence: US)
  Receive Date: 20240319
  Receipt Date: 20240319
  Transmission Date: 20240410
  Serious: Yes (Hospitalization, Other)
  Sender: FDA-Public Use
  Company Number: US-BIOGEN-2024BI01254764

PATIENT
  Sex: Female

DRUGS (4)
  1. VUMERITY [Suspect]
     Active Substance: DIROXIMEL FUMARATE
     Indication: Multiple sclerosis
     Dosage: TAKE 2 CAPSULES (462MG) BY MOUTH TWICE DAILY.
     Route: 050
  2. VALSARTAN [Concomitant]
     Active Substance: VALSARTAN
     Indication: Product used for unknown indication
     Route: 050
  3. ELIQUIS [Concomitant]
     Active Substance: APIXABAN
     Indication: Product used for unknown indication
     Route: 050
  4. TYLENOL [Concomitant]
     Active Substance: ACETAMINOPHEN
     Indication: Product used for unknown indication
     Route: 050

REACTIONS (6)
  - Multiple sclerosis relapse [Unknown]
  - Pulmonary thrombosis [Unknown]
  - Acquired cardiac septal defect [Unknown]
  - Thrombosis [Unknown]
  - Liver injury [Unknown]
  - COVID-19 [Unknown]

NARRATIVE: CASE EVENT DATE: 20220101
